FAERS Safety Report 8029020-5 (Version None)
Quarter: 2012Q1

REPORT INFORMATION
  Report Type: 
  Country: None (occurrence: None)
  Receive Date: 20120106
  Receipt Date: 20120105
  Transmission Date: 20120608
  Serious: No
  Sender: FDA-Public Use
  Company Number: US-BAYER-2012-001702

PATIENT
  Age: 50 Year
  Sex: Male
  Weight: 74.83 kg

DRUGS (1)
  1. MAGNEVIST [Suspect]
     Indication: ARTERIOGRAM CAROTID
     Dosage: 17 ML, ONCE
     Dates: start: 20120105

REACTIONS (1)
  - VOMITING [None]
